FAERS Safety Report 17200166 (Version 2)
Quarter: 2020Q2

REPORT INFORMATION
  Report Type: Spontaneous
  Country: CA (occurrence: CA)
  Receive Date: 20191226
  Receipt Date: 20200507
  Transmission Date: 20200713
  Serious: Yes (Other)
  Sender: FDA-Public Use
  Company Number: CA-DRREDDYS-USA/CAN/19/0117731

PATIENT
  Age: 14 Year
  Sex: Female
  Weight: 35 kg

DRUGS (1)
  1. ZOLEDRONIC ACID. [Suspect]
     Active Substance: ZOLEDRONIC ACID
     Indication: OSTEOGENESIS IMPERFECTA
     Route: 042

REACTIONS (5)
  - Osteonecrosis of jaw [Recovered/Resolved with Sequelae]
  - Product use in unapproved indication [Unknown]
  - Product use issue [Unknown]
  - Fistula [Recovering/Resolving]
  - Off label use [Unknown]
